FAERS Safety Report 21328661 (Version 4)
Quarter: 2022Q4

REPORT INFORMATION
  Report Type: Report from Study
  Country: US (occurrence: US)
  Receive Date: 20220913
  Receipt Date: 20221220
  Transmission Date: 20230113
  Serious: Yes (Hospitalization, Other)
  Sender: FDA-Public Use
  Company Number: US-BIOVITRUM-2022US10366

PATIENT
  Sex: Female

DRUGS (2)
  1. KINERET [Suspect]
     Active Substance: ANAKINRA
     Indication: Rheumatoid arthritis
     Dates: start: 20220812
  2. KINERET [Suspect]
     Active Substance: ANAKINRA
     Dates: start: 202208

REACTIONS (25)
  - Thrombosis [Unknown]
  - Dyspnoea [Unknown]
  - Cardiac dysfunction [Unknown]
  - Hypoxia [Unknown]
  - Pulmonary fibrosis [Unknown]
  - COVID-19 [Unknown]
  - Pneumonia [Unknown]
  - Cellulitis [Unknown]
  - Speech disorder [Unknown]
  - Fibrin D dimer increased [Unknown]
  - Toxicity to various agents [Unknown]
  - Illness [Unknown]
  - Injection site injury [Unknown]
  - Haemophilia [Unknown]
  - Chronic obstructive pulmonary disease [Unknown]
  - Oxygen saturation decreased [Unknown]
  - Hypersensitivity [Unknown]
  - Hepatic enzyme increased [Unknown]
  - Bronchitis [Unknown]
  - Injection site reaction [Unknown]
  - Injection site pain [Unknown]
  - Injection site erythema [Not Recovered/Not Resolved]
  - Injection site macule [Unknown]
  - Injection site scar [Unknown]
  - Product dose omission issue [Unknown]
